FAERS Safety Report 13824478 (Version 3)
Quarter: 2017Q3

REPORT INFORMATION
  Report Type: Spontaneous
  Country: JP (occurrence: JP)
  Receive Date: 20170802
  Receipt Date: 20170912
  Transmission Date: 20171127
  Serious: Yes (Other)
  Sender: FDA-Public Use
  Company Number: JP-BEH-2017082420

PATIENT
  Age: 4 Year
  Sex: Female

DRUGS (6)
  1. BERIPLAST P COMBI [Suspect]
     Active Substance: APROTININ\CALCIUM CHLORIDE\FIBRINOGEN HUMAN\FACTOR XIII CONCENTRATE (HUMAN)\THROMBIN
     Dosage: UNK
     Route: 065
  2. ALBUMINAR-5 [Suspect]
     Active Substance: ALBUMIN HUMAN
     Indication: PRODUCT USED FOR UNKNOWN INDICATION
     Dosage: 250 ML, UNK
     Route: 065
  3. BERIPLAST P COMBI [Suspect]
     Active Substance: APROTININ\CALCIUM CHLORIDE\FIBRINOGEN HUMAN\FACTOR XIII CONCENTRATE (HUMAN)\THROMBIN
     Indication: PRODUCT USE IN UNAPPROVED INDICATION
     Dosage: UNK
     Route: 065
  4. ALBUMINAR-5 [Suspect]
     Active Substance: ALBUMIN HUMAN
     Dosage: 250 ML, UNK
     Route: 065
  5. TACHOSIL [Suspect]
     Active Substance: FIBRINOGEN HUMAN\THROMBIN HUMAN
     Dosage: UNK
     Route: 065
  6. TACHOSIL [Suspect]
     Active Substance: FIBRINOGEN HUMAN\THROMBIN HUMAN
     Dosage: UNK
     Route: 065

REACTIONS (3)
  - Anxiety [Unknown]
  - Hepatitis C antibody positive [Unknown]
  - False positive investigation result [Unknown]
